FAERS Safety Report 23068298 (Version 1)
Quarter: 2023Q4

REPORT INFORMATION
  Report Type: Report from Study
  Country: EG (occurrence: EG)
  Receive Date: 20231016
  Receipt Date: 20231016
  Transmission Date: 20240109
  Serious: Yes (Other)
  Sender: FDA-Public Use
  Company Number: EG-SANDOZ-SDZ2023EG041001

PATIENT
  Age: 12 Year
  Sex: Male
  Weight: 55 kg

DRUGS (2)
  1. OMNITROPE [Suspect]
     Active Substance: SOMATROPIN
     Indication: Growth hormone deficiency
     Dosage: 2.5 MG, QD
     Route: 058
     Dates: start: 202203
  2. SOMATROPIN [Suspect]
     Active Substance: SOMATROPIN
     Indication: Growth hormone deficiency
     Dosage: 1 AMPOULE AND THIRD/ DAY(STOP DATE: MONTH OR MONTH AND HALF AGO {AUG-2023}
     Route: 058
     Dates: end: 202308

REACTIONS (7)
  - Epilepsy [Not Recovered/Not Resolved]
  - Injection site pain [Recovered/Resolved]
  - Medication error [Not Recovered/Not Resolved]
  - Incorrect dose administered [Not Recovered/Not Resolved]
  - Wrong technique in product usage process [Not Recovered/Not Resolved]
  - Wrong technique in product usage process [Recovered/Resolved]
  - Product dose omission issue [Unknown]

NARRATIVE: CASE EVENT DATE: 20220301
